FAERS Safety Report 14526237 (Version 1)
Quarter: 2018Q1

REPORT INFORMATION
  Report Type: Report from Study
  Country: US (occurrence: US)
  Receive Date: 20180213
  Receipt Date: 20180213
  Transmission Date: 20180509
  Serious: Yes (Other)
  Sender: FDA-Public Use
  Company Number: US-PFIZER INC-2018014394

PATIENT
  Age: 69 Year
  Sex: Female

DRUGS (3)
  1. IBRANCE [Suspect]
     Active Substance: PALBOCICLIB
     Dosage: 100 MG, DAILY
     Route: 048
     Dates: start: 20171025
  2. IBRANCE [Suspect]
     Active Substance: PALBOCICLIB
     Dosage: 125 MG, DAILY
     Route: 048
     Dates: start: 20170824
  3. IBRANCE [Suspect]
     Active Substance: PALBOCICLIB
     Indication: BREAST CANCER
     Dosage: 125 MG, DAILY
     Route: 048
     Dates: start: 20170824, end: 20170912

REACTIONS (7)
  - Swelling [Unknown]
  - Neutropenia [Not Recovered/Not Resolved]
  - Constipation [Unknown]
  - Renal impairment [Unknown]
  - Nausea [Unknown]
  - Hypercalcaemia [Unknown]
  - Dehydration [Unknown]

NARRATIVE: CASE EVENT DATE: 2017
